FAERS Safety Report 25267602 (Version 1)
Quarter: 2025Q2

REPORT INFORMATION
  Report Type: Spontaneous
  Country: US (occurrence: US)
  Receive Date: 20250505
  Receipt Date: 20250505
  Transmission Date: 20250717
  Serious: Yes (Other)
  Sender: CHEPLAPHARM
  Company Number: US-ROCHE-10000260523

PATIENT
  Sex: Female
  Weight: 74.839 kg

DRUGS (2)
  1. CLONAZEPAM [Suspect]
     Active Substance: CLONAZEPAM
     Indication: Feeling of relaxation
     Dates: start: 2005
  2. XANAX [Concomitant]
     Active Substance: ALPRAZOLAM
     Dates: start: 2005

REACTIONS (6)
  - Rheumatoid arthritis [Unknown]
  - Dyspnoea [Unknown]
  - Nasal disorder [Unknown]
  - Abdominal discomfort [Unknown]
  - Overweight [Unknown]
  - Off label use [Recovered/Resolved]

NARRATIVE: CASE EVENT DATE: 20050101
